FAERS Safety Report 16188207 (Version 1)
Quarter: 2019Q2

REPORT INFORMATION
  Report Type: Spontaneous
  Country: US (occurrence: US)
  Receive Date: 20190412
  Receipt Date: 20190412
  Transmission Date: 20190711
  Serious: Yes (Other)
  Sender: FDA-Public Use
  Company Number: US-AMGEN-USASP2019056665

PATIENT
  Age: 83 Year
  Sex: Male

DRUGS (6)
  1. IPILIMUMAB [Suspect]
     Active Substance: IPILIMUMAB
     Indication: MALIGNANT MELANOMA
     Dosage: 3 MILLIGRAM/KILOGRAM, CYCLICAL
     Route: 042
  2. TALIMOGENE LAHERPAREPVEC [Suspect]
     Active Substance: TALIMOGENE LAHERPAREPVEC
     Dosage: MONOTHERAPY (TOTAL 4 ML OF 100 MILLION PFU/ML)
     Route: 026
  3. ROSE BENGAL DISODIUM (PV-10) INTRALESIONAL THERAPY [Suspect]
     Active Substance: ROSE BENGAL SODIUM
     Indication: MALIGNANT MELANOMA
     Dosage: UNK UNK, CYCLICAL
     Route: 026
  4. TALIMOGENE LAHERPAREPVEC [Suspect]
     Active Substance: TALIMOGENE LAHERPAREPVEC
     Indication: MALIGNANT MELANOMA
     Dosage: 3 INJECTIONS (TOTAL 4 ML OF 100 MILLION PFU/ML IN 7 LESIONS ON EACH OCCASION)
     Route: 026
  5. PEMBROLIZUMAB. [Suspect]
     Active Substance: PEMBROLIZUMAB
     Indication: MALIGNANT MELANOMA
     Dosage: 200 MILLIGRAM, CYCLICAL
     Route: 042
  6. NIVOLUMAB [Suspect]
     Active Substance: NIVOLUMAB
     Indication: MALIGNANT MELANOMA
     Dosage: 1 MILLIGRAM/KILOGRAM, CYCLICAL
     Route: 042

REACTIONS (5)
  - Diarrhoea [Unknown]
  - Blood lactate dehydrogenase increased [Recovering/Resolving]
  - Malignant melanoma [Recovering/Resolving]
  - Off label use [Unknown]
  - Therapy non-responder [Recovering/Resolving]
